FAERS Safety Report 18747759 (Version 1)
Quarter: 2021Q1

REPORT INFORMATION
  Report Type: Spontaneous
  Country: ES (occurrence: ES)
  Receive Date: 20210115
  Receipt Date: 20210115
  Transmission Date: 20210419
  Serious: Yes (Death, Other)
  Sender: FDA-Public Use
  Company Number: ES-TEVA-2021-ES-1868440

PATIENT
  Age: 57 Year
  Sex: Male

DRUGS (4)
  1. HIDROXICLOROQUINA (2143A) [Suspect]
     Active Substance: HYDROXYCHLOROQUINE
     Indication: COVID-19
     Dosage: 400/12 H FIRST DAY, THEN 200MG
     Route: 048
     Dates: start: 20200315
  2. FUROSEMIDA (1615A) [Suspect]
     Active Substance: FUROSEMIDE
     Route: 041
     Dates: start: 20200316
  3. LOPINAVIR + RITONAVIR [Suspect]
     Active Substance: LOPINAVIR\RITONAVIR
     Indication: COVID-19
     Dosage: 400 MG
     Route: 048
     Dates: start: 20200313
  4. TOCILIZUMAB (8289A) [Suspect]
     Active Substance: TOCILIZUMAB
     Indication: COVID-19
     Dosage: 800 MG
     Dates: start: 20200314

REACTIONS (2)
  - Hypernatraemia [Fatal]
  - Renal failure [Fatal]

NARRATIVE: CASE EVENT DATE: 20200319
